FAERS Safety Report 23728335 (Version 2)
Quarter: 2024Q2

REPORT INFORMATION
  Report Type: Spontaneous
  Country: US (occurrence: US)
  Receive Date: 20240410
  Receipt Date: 20240412
  Transmission Date: 20240716
  Serious: Yes (Life-Threatening, Hospitalization, Other)
  Sender: FDA-Public Use
  Company Number: US-BAXTER-2024BAX016272

PATIENT
  Age: 78 Year
  Sex: Male

DRUGS (1)
  1. LABETALOL HYDROCHLORIDE [Suspect]
     Active Substance: LABETALOL HYDROCHLORIDE
     Indication: Hypertensive crisis
     Dosage: UNK
     Route: 042

REACTIONS (3)
  - Cardiac arrest [Unknown]
  - Hypertensive crisis [Unknown]
  - Ventricular fibrillation [Unknown]
